FAERS Safety Report 16269215 (Version 1)
Quarter: 2019Q2

REPORT INFORMATION
  Report Type: Spontaneous
  Country: US (occurrence: US)
  Receive Date: 20190502
  Receipt Date: 20190502
  Transmission Date: 20190711
  Serious: No
  Sender: FDA-Public Use
  Company Number: None

PATIENT
  Age: 58 Year
  Sex: Female

DRUGS (5)
  1. VIVITROL [Suspect]
     Active Substance: NALTREXONE
     Indication: ALCOHOLISM
     Dosage: ?          OTHER FREQUENCY:Q 4 WEEKS;?
     Route: 058
     Dates: start: 20181213
  2. TRAZODONE [Concomitant]
     Active Substance: TRAZODONE HYDROCHLORIDE
  3. LISINOPRIL/HCTZ 20/25 [Concomitant]
     Active Substance: HYDROCHLOROTHIAZIDE\LISINOPRIL
  4. ATORVASTATIN 40 MG [Concomitant]
     Active Substance: ATORVASTATIN
  5. METOCLOPRAMIDE 10MG [Concomitant]
     Active Substance: METOCLOPRAMIDE

REACTIONS (3)
  - Asthenia [None]
  - Influenza like illness [None]
  - Abdominal pain upper [None]

NARRATIVE: CASE EVENT DATE: 20181130
